FAERS Safety Report 8559648-5 (Version None)
Quarter: 2012Q3

REPORT INFORMATION
  Report Type: 
  Country: None (occurrence: None)
  Receive Date: 20120802
  Receipt Date: 20120726
  Transmission Date: 20120928
  Serious: Yes (Disabling, Other)
  Sender: FDA-Public Use
  Company Number: GB-BAYER-2012-075619

PATIENT
  Age: 62 Year
  Sex: Female
  Weight: 89.35 kg

DRUGS (9)
  1. DOXYCYCLINE HCL [Concomitant]
  2. AMOXICILLIN [Concomitant]
  3. MU-CRON [CEPHAEL SPP.,GUAIF,PARACET,PHENYLPROPANOLAM HCL] [Concomitant]
  4. ADCAL [Concomitant]
  5. FELODIPINE [Concomitant]
  6. CIPROFLOXACIN HCL [Suspect]
     Indication: BRONCHITIS
     Dosage: 1 DF EVERY 12 HOURS
     Route: 048
     Dates: start: 20120521, end: 20120526
  7. OMEPRAZOLE [Concomitant]
  8. FLUTICASONE PROPIONATE/SALMETEROL [Concomitant]
  9. STEROIDS [Concomitant]

REACTIONS (4)
  - OEDEMA PERIPHERAL [None]
  - BLISTER [None]
  - ULCER [None]
  - PARAESTHESIA [None]
